FAERS Safety Report 8875453 (Version 2)
Quarter: 2012Q4

REPORT INFORMATION
  Report Type: 
  Country: CO (occurrence: CO)
  Receive Date: 20121029
  Receipt Date: 20121112
  Transmission Date: 20130627
  Serious: Yes (Other)
  Sender: FDA-Public Use
  Company Number: CO-009507513-1210COL012147

PATIENT
  Age: 62 Year
  Sex: Male

DRUGS (8)
  1. VICTRELIS [Suspect]
     Indication: HEPATITIS C
     Dosage: UNK
     Route: 048
     Dates: start: 20120907
  2. RIBAVIRIN [Suspect]
     Dosage: UNK
     Route: 048
  3. PEGASYS [Suspect]
     Dosage: UNK
  4. INSULIN [Concomitant]
  5. LINAGLIPTIN [Concomitant]
  6. ENALAPRIL MALEATE [Concomitant]
  7. METOPROLOL [Concomitant]
  8. HYDROCHLOROTHIAZIDE [Concomitant]

REACTIONS (1)
  - Pancytopenia [Unknown]
